FAERS Safety Report 9305256 (Version 1)
Quarter: 2013Q2

REPORT INFORMATION
  Report Type: Spontaneous
  Country: US (occurrence: US)
  Receive Date: 20130523
  Receipt Date: 20130523
  Transmission Date: 20140414
  Serious: Yes (Other)
  Sender: FDA-Public Use
  Company Number: US-SUN PHARMACEUTICAL INDUSTRIES LTD-2013SUN00623

PATIENT
  Age: 62 Year
  Sex: Male

DRUGS (9)
  1. AMLODIPINE BESYLATE 2.5 MG TABLET [Suspect]
     Indication: PRODUCT USED FOR UNKNOWN INDICATION
     Route: 065
  2. ISOSORBIDE DINITRATE [Concomitant]
  3. LISINOPRIL [Concomitant]
  4. METOPROLOL [Concomitant]
  5. ASPIRIN [Concomitant]
  6. CLOPIDROGEL [Concomitant]
  7. FINOFIBRATE [Concomitant]
  8. SIMVASTATIN [Concomitant]
  9. RANITIDINE [Concomitant]

REACTIONS (1)
  - Cutaneous lupus erythematosus [Recovered/Resolved]
